FAERS Safety Report 6368366-3 (Version None)
Quarter: 2009Q3

REPORT INFORMATION
  Report Type: 
  Country: None (occurrence: None)
  Receive Date: 20090922
  Receipt Date: 20090911
  Transmission Date: 20100115
  Serious: Yes (Other)
  Sender: FDA-Public Use
  Company Number: BR-ROCHE-656331

PATIENT
  Age: 25 Year
  Sex: Female

DRUGS (2)
  1. ISOTRETINOIN [Suspect]
     Indication: ACNE
     Dosage: FREQUENCY: EVERYDAY
     Route: 048
     Dates: start: 20060101, end: 20080801
  2. ISOTRETINOIN [Suspect]
     Route: 048
     Dates: start: 20080801, end: 20090401

REACTIONS (6)
  - ACNE [None]
  - BLOOD CHOLESTEROL INCREASED [None]
  - FEMUR FRACTURE [None]
  - JAW FRACTURE [None]
  - ROAD TRAFFIC ACCIDENT [None]
  - WRIST FRACTURE [None]
